FAERS Safety Report 5679742-6 (Version None)
Quarter: 2008Q1

REPORT INFORMATION
  Report Type: 
  Country: None (occurrence: None)
  Receive Date: 20080321
  Receipt Date: 20080319
  Transmission Date: 20080703
  Serious: Yes (Death, Life-Threatening, Other)
  Sender: FDA-Public Use
  Company Number: 2007SP007428

PATIENT
  Age: 71 Year
  Sex: Male
  Weight: 46 kg

DRUGS (8)
  1. TEMODAL [Suspect]
     Indication: GLIOBLASTOMA MULTIFORME
     Dosage: 150 MG/M2; QD; PO; 200 MG/M2; QD; PO
     Route: 048
     Dates: start: 20061023, end: 20061027
  2. TEMODAL [Suspect]
     Indication: GLIOBLASTOMA MULTIFORME
     Dosage: 150 MG/M2; QD; PO; 200 MG/M2; QD; PO
     Route: 048
     Dates: start: 20031120, end: 20061124
  3. PHENOBARBITAL TAB [Concomitant]
  4. FLIVAS [Concomitant]
  5. DIGITOXIN INJ [Concomitant]
  6. COVERSYL [Concomitant]
  7. DIOVAN [Concomitant]
  8. AMLODIN [Concomitant]

REACTIONS (8)
  - BLOOD ALKALINE PHOSPHATASE INCREASED [None]
  - BRAIN NEOPLASM [None]
  - DISSEMINATED INTRAVASCULAR COAGULATION [None]
  - HYPONATRAEMIA [None]
  - LYMPHOCYTE COUNT DECREASED [None]
  - NEOPLASM PROGRESSION [None]
  - PNEUMONIA STAPHYLOCOCCAL [None]
  - SPUTUM CULTURE POSITIVE [None]
